FAERS Safety Report 6104010-8 (Version None)
Quarter: 2009Q1

REPORT INFORMATION
  Report Type: 
  Country: None (occurrence: None)
  Receive Date: 20090305
  Receipt Date: 20090302
  Transmission Date: 20090719
  Serious: Yes (Other)
  Sender: FDA-Public Use
  Company Number: US-ELI_LILLY_AND_COMPANY-US200903000496

PATIENT
  Sex: Female

DRUGS (1)
  1. XIGRIS [Suspect]
     Dosage: UNK, OTHER

REACTIONS (1)
  - CONVULSION [None]
